FAERS Safety Report 5200003-3 (Version None)
Quarter: 2007Q1

REPORT INFORMATION
  Report Type: 
  Country: None (occurrence: None)
  Receive Date: 20070105
  Receipt Date: 20061226
  Transmission Date: 20070707
  Serious: Yes (Hospitalization, Other)
  Sender: FDA-Public Use
  Company Number: PHBS2006JP17458

PATIENT
  Age: 34 Year
  Sex: Female

DRUGS (11)
  1. PREDNISOLONE [Concomitant]
     Indication: BONE MARROW TRANSPLANT
     Dosage: 1 G, UNK
     Route: 048
  2. PREDNISOLONE [Concomitant]
     Dosage: 10 MG/DAY
     Route: 048
     Dates: start: 20040601
  3. METHOTREXATE [Concomitant]
     Indication: BONE MARROW TRANSPLANT
     Dosage: DAY 1, 3, 6, 11 POST-OP
  4. BUSULFAN [Concomitant]
     Indication: BONE MARROW TRANSPLANT
     Dosage: 4 MG/KG, QD
  5. CYCLOPHOSPHAMIDE [Concomitant]
     Indication: BONE MARROW TRANSPLANT
     Dosage: 60 MG/KG, QD
  6. NEORAL [Suspect]
     Indication: BONE MARROW TRANSPLANT
     Dosage: 250 MG/DAY
     Route: 048
     Dates: start: 20030501, end: 20030901
  7. NEORAL [Suspect]
     Dosage: 200 MG/DAY
     Route: 048
     Dates: start: 20030901, end: 20030901
  8. NEORAL [Suspect]
     Dosage: 100 MG/DAY
     Route: 048
     Dates: start: 20030901, end: 20040301
  9. NEORAL [Suspect]
     Dosage: 80 MG/DAY
     Route: 048
     Dates: start: 20040301, end: 20040101
  10. NEORAL [Suspect]
     Dosage: 20 MG/DAY
     Route: 048
     Dates: start: 20040101
  11. SANDIMMUNE [Suspect]
     Indication: BONE MARROW TRANSPLANT
     Dosage: 3 MG/KG, UNK
     Dates: start: 20030301, end: 20030501

REACTIONS (22)
  - ACUTE SINUSITIS [None]
  - BONE SCAN ABNORMAL [None]
  - CENTRAL NERVOUS SYSTEM INFLAMMATION [None]
  - DISEASE RECURRENCE [None]
  - GASTROENTERITIS [None]
  - GRAFT VERSUS HOST DISEASE [None]
  - HYPOAESTHESIA [None]
  - LHERMITTE'S SIGN [None]
  - MUSCULOSKELETAL STIFFNESS [None]
  - MYELODYSPLASTIC SYNDROME [None]
  - MYELOPATHY [None]
  - PAIN IN EXTREMITY [None]
  - PANCYTOPENIA [None]
  - PARAESTHESIA [None]
  - PNEUMONIA [None]
  - PRURITUS [None]
  - RADICULAR PAIN [None]
  - SENSORY DISTURBANCE [None]
  - SENSORY LOSS [None]
  - SOMATOSENSORY EVOKED POTENTIALS ABNORMAL [None]
  - SPINAL CORD DISORDER [None]
  - THROMBOPHLEBITIS [None]
